FAERS Safety Report 10156506 (Version 1)
Quarter: 2014Q2

REPORT INFORMATION
  Report Type: Report from Study
  Country: US (occurrence: US)
  Receive Date: 20140507
  Receipt Date: 20140507
  Transmission Date: 20141212
  Serious: Yes (Other)
  Sender: FDA-Public Use
  Company Number: US-ROCHE-1394912

PATIENT
  Sex: Male
  Weight: 27.9 kg

DRUGS (6)
  1. NUTROPIN AQ [Suspect]
     Indication: BODY HEIGHT BELOW NORMAL
     Route: 058
  2. ALBUTEROL [Concomitant]
     Dosage: AS NEEDED.
     Route: 065
  3. BECLOMETHASONE DIPROPIONATE [Concomitant]
     Dosage: AS NEEDED.
     Route: 065
  4. FOCALIN XR [Concomitant]
     Route: 048
  5. FOCALIN XR [Concomitant]
     Route: 065
  6. MONTELUKAST SODIUM [Concomitant]
     Dosage: AS NEEDED.
     Route: 048

REACTIONS (2)
  - Needle issue [Unknown]
  - Fear of injection [Unknown]
